FAERS Safety Report 14790655 (Version 3)
Quarter: 2018Q2

REPORT INFORMATION
  Report Type: Report from Study
  Country: PL (occurrence: PL)
  Receive Date: 20180423
  Receipt Date: 20180510
  Transmission Date: 20180711
  Serious: Yes (Hospitalization, Other)
  Sender: FDA-Public Use
  Company Number: PL-SA-2017SA215680

PATIENT
  Age: 61 Year
  Sex: Male

DRUGS (8)
  1. RAMIPRIL. [Suspect]
     Active Substance: RAMIPRIL
     Indication: SPINAL CORD ISCHAEMIA
     Route: 048
  2. DEXAVEN [Suspect]
     Active Substance: DEXAMETHASONE
     Indication: SPINAL CORD ISCHAEMIA
     Route: 042
  3. TORASEMIDE [Suspect]
     Active Substance: TORSEMIDE
     Indication: SPINAL CORD ISCHAEMIA
     Route: 065
  4. ENOXAPARIN SODIUM. [Suspect]
     Active Substance: ENOXAPARIN SODIUM
     Indication: SPINAL CORD ISCHAEMIA
     Route: 065
  5. ASPIRIN. [Suspect]
     Active Substance: ASPIRIN
     Indication: SPINAL CORD ISCHAEMIA
     Route: 065
  6. TISSUE PLASMINOGEN ACTIVATOR, RECOMBINATIVE [Concomitant]
     Active Substance: ALTEPLASE
     Dosage: 90 MINUTES SINCE THE?ONSET OF SYMPTOMS ?(0.9 MG/KG)
     Route: 042
  7. ATORVASTATIN [Suspect]
     Active Substance: ATORVASTATIN
     Indication: SPINAL CORD ISCHAEMIA
     Route: 065
  8. MANNITOL. [Suspect]
     Active Substance: MANNITOL
     Indication: SPINAL CORD ISCHAEMIA
     Route: 042

REACTIONS (4)
  - Paralysis [Recovered/Resolved]
  - Condition aggravated [Recovered/Resolved]
  - Drug ineffective [Unknown]
  - Paresis [Recovered/Resolved]

NARRATIVE: CASE EVENT DATE: 20171025
